FAERS Safety Report 8917873 (Version 9)
Quarter: 2014Q3

REPORT INFORMATION
  Report Type: Spontaneous
  Country: GB (occurrence: GB)
  Receive Date: 20121120
  Receipt Date: 20140702
  Transmission Date: 20150326
  Serious: Yes (Life-Threatening, Hospitalization, Other)
  Sender: FDA-Public Use
  Company Number: GB-US-EMD SERONO, INC.-7166787

PATIENT
  Age: 36 Year
  Sex: Female

DRUGS (6)
  1. SOLIFENACIN [Concomitant]
     Active Substance: SOLIFENACIN
     Indication: EPILEPSY
     Route: 048
  2. AMITRIPTYLINE [Concomitant]
     Active Substance: AMITRIPTYLINE
     Indication: EPILEPSY
     Route: 048
  3. REBIF [Suspect]
     Active Substance: INTERFERON BETA-1A
     Indication: MULTIPLE SCLEROSIS
     Route: 058
     Dates: start: 19990825, end: 20120317
  4. FEXOFENADINE [Concomitant]
     Active Substance: FEXOFENADINE\FEXOFENADINE HYDROCHLORIDE
     Indication: EPILEPSY
     Route: 048
  5. VALPROATE SODIUM. [Concomitant]
     Active Substance: VALPROATE SODIUM
     Indication: EPILEPSY
     Route: 048
  6. OMEPRAZOLE. [Concomitant]
     Active Substance: OMEPRAZOLE
     Indication: EPILEPSY
     Route: 048

REACTIONS (3)
  - Thrombotic microangiopathy [Unknown]
  - Haemolytic uraemic syndrome [Recovered/Resolved]
  - Malignant hypertension [Unknown]

NARRATIVE: CASE EVENT DATE: 20120317
